FAERS Safety Report 10395336 (Version 3)
Quarter: 2016Q2

REPORT INFORMATION
  Report Type: Spontaneous
  Country: US (occurrence: US)
  Receive Date: 20140820
  Receipt Date: 20160408
  Transmission Date: 20160815
  Serious: No
  Sender: FDA-Public Use
  Company Number: US-PFIZER INC-2014210089

PATIENT
  Age: 68 Year
  Sex: Female
  Weight: 63 kg

DRUGS (9)
  1. OXYCODONE HYDROCHLORIDE. [Suspect]
     Active Substance: OXYCODONE HYDROCHLORIDE
     Indication: PAIN
     Dosage: 10-20 MG EVERY 6 HOURS AS NEEDED
  2. FENTANYL. [Suspect]
     Active Substance: FENTANYL
     Indication: BACK PAIN
     Dosage: 12.5 UG, CYCLIC, PER 72 HOURS
     Route: 061
  3. FENTANYL. [Suspect]
     Active Substance: FENTANYL
     Dosage: 50 UG, CYCLIC, PER 72 HOURS
     Route: 061
     Dates: start: 20140519
  4. FENTANYL. [Suspect]
     Active Substance: FENTANYL
     Dosage: 100 UG, CYCLIC, PER 72 HOURS
     Route: 061
     Dates: start: 20140721
  5. OXYCODONE HYDROCHLORIDE. [Suspect]
     Active Substance: OXYCODONE HYDROCHLORIDE
     Dosage: 20 MG, UNK
  6. OXYCODONE HYDROCHLORIDE. [Suspect]
     Active Substance: OXYCODONE HYDROCHLORIDE
     Indication: GROIN PAIN
     Dosage: 10 MG, AS NEEDED (1-2Q 4H PRN)
  7. OXYCODONE HYDROCHLORIDE. [Suspect]
     Active Substance: OXYCODONE HYDROCHLORIDE
     Dosage: UNK, AS NEEDED (10-20 MG Q 4H PRN)
  8. FENTANYL. [Suspect]
     Active Substance: FENTANYL
     Indication: GROIN PAIN
     Dosage: 25 UG, CYCLIC, PER 72 HOURS
     Route: 061
     Dates: start: 20140509
  9. OXYCODONE HYDROCHLORIDE. [Suspect]
     Active Substance: OXYCODONE HYDROCHLORIDE
     Indication: BACK PAIN
     Dosage: 10 MG, AS NEEDED (2-3 TABS Q 4 HOURS PRN)

REACTIONS (1)
  - Drug ineffective [Recovered/Resolved]

NARRATIVE: CASE EVENT DATE: 20140509
